FAERS Safety Report 13742866 (Version 2)
Quarter: 2017Q3

REPORT INFORMATION
  Report Type: Spontaneous
  Country: IT (occurrence: IT)
  Receive Date: 20170711
  Receipt Date: 20170714
  Transmission Date: 20171127
  Serious: Yes (Other)
  Sender: FDA-Public Use
  Company Number: IT-JNJFOC-20170706865

PATIENT
  Age: 80 Year
  Sex: Male
  Weight: 64 kg

DRUGS (6)
  1. ANTRA [Concomitant]
     Active Substance: OMEPRAZOLE
     Route: 048
  2. PLAVIX [Concomitant]
     Active Substance: CLOPIDOGREL BISULFATE
     Route: 048
  3. LEVOXACIN [Concomitant]
     Active Substance: LEVOFLOXACIN
     Route: 048
  4. XARELTO [Suspect]
     Active Substance: RIVAROXABAN
     Indication: ATRIAL FIBRILLATION
     Route: 048
     Dates: start: 20170628, end: 20170703
  5. TORVAST [Concomitant]
     Active Substance: ATORVASTATIN
     Route: 048
  6. CORDARONE [Concomitant]
     Active Substance: AMIODARONE HYDROCHLORIDE
     Route: 048

REACTIONS (1)
  - Pericardial effusion [Recovering/Resolving]

NARRATIVE: CASE EVENT DATE: 20170629
